FAERS Safety Report 5152505-6 (Version None)
Quarter: 2006Q4

REPORT INFORMATION
  Report Type: 
  Country: None (occurrence: None)
  Receive Date: 20061109
  Receipt Date: 20061025
  Transmission Date: 20070319
  Serious: Yes (Other)
  Sender: FDA-Public Use
  Company Number: S06-FRA-03579-01

PATIENT
  Age: 49 Year
  Sex: Female
  Weight: 55 kg

DRUGS (7)
  1. CITALOPRAM HYDROBROMIDE [Suspect]
     Indication: DEPRESSION
     Dosage: 10 MG QD PO
     Route: 048
     Dates: start: 20011101, end: 20060601
  2. CHLORMADINONE ACETATE TAB [Concomitant]
  3. TRANXENE [Concomitant]
  4. OROCAL                (CALCIUM CARBONATE) [Concomitant]
  5. TRAVATAN [Concomitant]
  6. AZOPT [Concomitant]
  7. CARTEOL [Concomitant]

REACTIONS (2)
  - CONDITION AGGRAVATED [None]
  - VISUAL FIELD DEFECT [None]
